FAERS Safety Report 9716543 (Version 1)
Quarter: 2013Q4

REPORT INFORMATION
  Report Type: Spontaneous
  Country: US (occurrence: US)
  Receive Date: 20131127
  Receipt Date: 20131127
  Transmission Date: 20140711
  Serious: No
  Sender: FDA-Public Use
  Company Number: US-PFIZER INC-2013334798

PATIENT
  Age: 6 Year
  Sex: Male
  Weight: 77.1 kg

DRUGS (1)
  1. TETRACYCLINE HCL [Suspect]
     Indication: EAR INFECTION
     Dosage: UNK
     Dates: start: 1962

REACTIONS (1)
  - Tooth discolouration [Not Recovered/Not Resolved]
